FAERS Safety Report 4599855-X (Version None)
Quarter: 2005Q1

REPORT INFORMATION
  Report Type: 
  Country: None (occurrence: None)
  Receive Date: 20050303
  Receipt Date: 20050215
  Transmission Date: 20050727
  Serious: Yes (Hospitalization, Other)
  Sender: FDA-Public Use
  Company Number: USA040465760

PATIENT
  Age: 78 Year
  Sex: Female
  Weight: 52 kg

DRUGS (12)
  1. FORTEO [Suspect]
     Indication: OSTEOPOROSIS
     Dosage: 20 UG / 1 DAY
     Dates: start: 20040201
  2. FOSAMAX [Concomitant]
  3. VERAPAMIL [Concomitant]
  4. NITROGLYCERIN [Concomitant]
  5. CELEBREX [Concomitant]
  6. ZOCOR [Concomitant]
  7. ASPIRIN [Concomitant]
  8. MULTI-VITAMIN [Concomitant]
  9. ISOSORBIDE [Concomitant]
  10. OXYBUTYNIN [Concomitant]
  11. IRBESARTAN [Concomitant]
  12. LANSOPRAZOLE [Concomitant]

REACTIONS (11)
  - BACK PAIN [None]
  - BRONCHITIS [None]
  - DIZZINESS [None]
  - DYSPNOEA [None]
  - HEARING IMPAIRED [None]
  - HYPOTENSION [None]
  - INJECTION SITE HAEMORRHAGE [None]
  - LUNG INFECTION [None]
  - PAIN [None]
  - PHARMACEUTICAL PRODUCT COMPLAINT [None]
  - VISUAL ACUITY REDUCED [None]
